FAERS Safety Report 5618243-8 (Version None)
Quarter: 2008Q1

REPORT INFORMATION
  Report Type: 
  Country: None (occurrence: None)
  Receive Date: 20080207
  Receipt Date: 20080131
  Transmission Date: 20080703
  Serious: Yes (Hospitalization)
  Sender: FDA-Public Use
  Company Number: JP-WYE-H02436608

PATIENT
  Age: 80 Year
  Sex: Female

DRUGS (18)
  1. TAZOCIN [Suspect]
     Indication: CHOLECYSTITIS
     Route: 041
     Dates: start: 20080116, end: 20080124
  2. ELECTROLYTE SOLUTIONS [Concomitant]
     Dosage: UNKNOWN DOSE AND FREQUENCY
     Route: 041
  3. VITAMINS NOS [Concomitant]
     Dosage: UNKNOWN DOSE AND FREQUENCY
     Route: 041
  4. ASCORBIC ACID [Concomitant]
     Dosage: UNKNOWN DOSE AND FREQUENCY
     Route: 041
  5. RIBOFLAVIN TAB [Concomitant]
     Dosage: UNKNOWN DOSE AND FREQUENCY
     Route: 065
  6. THIAMINE DISULFIDE [Concomitant]
     Dosage: UNKNOWN DOSE AND FREQUENCY
     Route: 065
  7. PYRIDOXINE HYDROCHLORIDE [Concomitant]
     Dosage: UNKNOWN DOSE AND FREQUENCY
     Route: 065
  8. VITAMIN B-12 [Concomitant]
     Dosage: UNKNOWN DOSE AND FREQUENCY
     Route: 065
  9. SOLDEM 3 [Concomitant]
     Dosage: UNKNOWN DOSE AND FREQUENCY
     Route: 041
  10. AMLODIPINE BESYLATE [Concomitant]
     Dosage: UNKNOWN DOSE AND FREQUENCY
     Route: 048
  11. DIOVAN [Concomitant]
     Route: 048
  12. NIZATIDINE [Concomitant]
     Route: 048
  13. ASPIRIN [Concomitant]
     Route: 048
  14. MOBIC [Concomitant]
     Route: 048
  15. ALEVIATIN [Concomitant]
     Route: 048
  16. MAGNESIUM OXIDE [Concomitant]
     Route: 048
  17. ARTIST [Concomitant]
     Route: 048
  18. AMINO ACIDS NOS [Concomitant]
     Dosage: UNKNOWN DOSE AND FREQUENCY
     Route: 041

REACTIONS (1)
  - PNEUMONIA [None]
